FAERS Safety Report 9380653 (Version 2)
Quarter: 2013Q3

REPORT INFORMATION
  Report Type: Spontaneous
  Country: JP (occurrence: JP)
  Receive Date: 20130702
  Receipt Date: 20130826
  Transmission Date: 20140515
  Serious: Yes (Hospitalization)
  Sender: FDA-Public Use
  Company Number: CHNY2013JP001412

PATIENT
  Age: 78 Year
  Sex: Female

DRUGS (4)
  1. PURSENNID [Suspect]
     Indication: CONSTIPATION
     Dosage: 12 MG, QD
     Route: 048
     Dates: start: 201007
  2. MAGNESIUM OXIDE [Concomitant]
     Indication: CONSTIPATION
     Dosage: UNK, UNK
     Route: 048
  3. MAGMITT [Concomitant]
     Indication: CONSTIPATION
     Dosage: UNK, UNK
     Route: 048
  4. KAMAG G [Concomitant]
     Indication: CONSTIPATION
     Dosage: UNK, UNK
     Route: 048
     Dates: start: 201007

REACTIONS (3)
  - Intestinal obstruction [Recovered/Resolved]
  - Vomiting [Unknown]
  - Abdominal distension [Unknown]
